FAERS Safety Report 19032721 (Version 1)
Quarter: 2021Q1

REPORT INFORMATION
  Report Type: Spontaneous
  Country: CA (occurrence: CA)
  Receive Date: 20210319
  Receipt Date: 20210319
  Transmission Date: 20210420
  Serious: Yes (Other)
  Sender: FDA-Public Use
  Company Number: CA-MYLANLABS-2021M1016343

PATIENT
  Sex: Female
  Weight: 105 kg

DRUGS (1)
  1. BUDESONIDE. [Suspect]
     Active Substance: BUDESONIDE
     Indication: CROHN^S DISEASE
     Dosage: 3 MILLIGRAM, QD
     Route: 065
     Dates: start: 202010, end: 202102

REACTIONS (1)
  - Drug ineffective [Unknown]
